FAERS Safety Report 5109807-9 (Version None)
Quarter: 2006Q3

REPORT INFORMATION
  Report Type: 
  Country: None (occurrence: None)
  Receive Date: 20060918
  Receipt Date: 20060918
  Transmission Date: 20061208
  Serious: Yes (Other)
  Sender: FDA-Public Use
  Company Number: None

PATIENT
  Age: 58 Year
  Sex: Female
  Weight: 113.3993 kg

DRUGS (1)
  1. TOPROL XL 50 MGASTRAZENACA [Suspect]
     Indication: HEART RATE INCREASED
     Dosage: 50 MG   1 A DAY
     Dates: start: 20060818, end: 20060914

REACTIONS (6)
  - ABDOMINAL PAIN [None]
  - CONSTIPATION [None]
  - DIARRHOEA [None]
  - DRUG DISPENSING ERROR [None]
  - DYSPEPSIA [None]
  - NAUSEA [None]
